FAERS Safety Report 6252381-4 (Version None)
Quarter: 2009Q3

REPORT INFORMATION
  Report Type: 
  Country: None (occurrence: None)
  Receive Date: 20090701
  Receipt Date: 20090619
  Transmission Date: 20100115
  Serious: Yes (Life-Threatening, Disabling, Other)
  Sender: FDA-Public Use
  Company Number: GB-PFIZER INC-2009215708

PATIENT
  Age: 37 Year

DRUGS (4)
  1. SOMAVERT [Suspect]
     Dosage: 30 MG, 1X/DAY
     Route: 058
     Dates: start: 20080701, end: 20090129
  2. HYDROCORTISONE [Concomitant]
     Dosage: DAILY
     Route: 048
  3. LEVOTHYROXINE SODIUM [Concomitant]
     Dosage: 100 UG, UNK
  4. TESTOSTERONE [Concomitant]
     Route: 062

REACTIONS (9)
  - ABDOMINAL PAIN [None]
  - ABDOMINAL PAIN UPPER [None]
  - DYSPNOEA [None]
  - HEADACHE [None]
  - HEPATIC ENZYME INCREASED [None]
  - HYPERVENTILATION [None]
  - PRURITUS [None]
  - RASH MACULAR [None]
  - URINE COLOUR ABNORMAL [None]
